FAERS Safety Report 14581305 (Version 3)
Quarter: 2018Q2

REPORT INFORMATION
  Report Type: Report from Study
  Country: EC (occurrence: EC)
  Receive Date: 20180228
  Receipt Date: 20180503
  Transmission Date: 20180711
  Serious: Yes (Other)
  Sender: FDA-Public Use
  Company Number: PHHY2017EC139387

PATIENT
  Age: 37 Year
  Sex: Female

DRUGS (9)
  1. TASIGNA [Suspect]
     Active Substance: NILOTINIB
     Dosage: 400 MG, QD
     Route: 048
     Dates: start: 20151001, end: 20160131
  2. TASIGNA [Suspect]
     Active Substance: NILOTINIB
     Dosage: 200 MG, QD
     Route: 048
     Dates: start: 20171115, end: 20171220
  3. TASIGNA [Suspect]
     Active Substance: NILOTINIB
     Dosage: 400 MG, QD
     Route: 048
     Dates: start: 20171221, end: 20180204
  4. TASIGNA [Suspect]
     Active Substance: NILOTINIB
     Dosage: 400 MG, QD
     Route: 048
     Dates: start: 20160623, end: 20170208
  5. TASIGNA [Suspect]
     Active Substance: NILOTINIB
     Dosage: 800 MG, QD
     Route: 048
     Dates: start: 20180205
  6. IMATINIB [Suspect]
     Active Substance: IMATINIB
     Indication: CHRONIC MYELOID LEUKAEMIA
     Dosage: UNK
     Route: 065
     Dates: start: 200606, end: 201107
  7. TASIGNA [Suspect]
     Active Substance: NILOTINIB
     Indication: CHRONIC MYELOID LEUKAEMIA
     Dosage: 200 MG, QD
     Route: 048
     Dates: start: 20140327, end: 20150930
  8. TASIGNA [Suspect]
     Active Substance: NILOTINIB
     Dosage: 500 MG WHICH WAS GIVEN AS 600 MG ONE DAY AND 400 MG OTHER DAY
     Route: 048
     Dates: start: 20160201, end: 20170622
  9. TASIGNA [Suspect]
     Active Substance: NILOTINIB
     Dosage: 600 MG, QD
     Route: 048
     Dates: start: 20170209, end: 20170920

REACTIONS (13)
  - Carbohydrate intolerance [Unknown]
  - Abdominal pain [Not Recovered/Not Resolved]
  - Dysentery [Not Recovered/Not Resolved]
  - Malaise [Not Recovered/Not Resolved]
  - Chronic myeloid leukaemia [Unknown]
  - Diabetes mellitus [Unknown]
  - Blood triglycerides increased [Not Recovered/Not Resolved]
  - Liver disorder [Not Recovered/Not Resolved]
  - Hypothyroidism [Unknown]
  - Gastritis [Not Recovered/Not Resolved]
  - Weight decreased [Unknown]
  - Inappropriate schedule of drug administration [Not Recovered/Not Resolved]
  - Muscle neoplasm [Unknown]

NARRATIVE: CASE EVENT DATE: 20140327
